FAERS Safety Report 7306628-3 (Version None)
Quarter: 2011Q1

REPORT INFORMATION
  Report Type: 
  Country: None (occurrence: None)
  Receive Date: 20110222
  Receipt Date: 20110208
  Transmission Date: 20110831
  Serious: Yes (Other)
  Sender: FDA-Public Use
  Company Number: GB-MYLANLABS-2011S1002651

PATIENT
  Age: 66 Year
  Sex: Male
  Weight: 72 kg

DRUGS (7)
  1. NOVORAPID [Concomitant]
     Indication: PRODUCT USED FOR UNKNOWN INDICATION
  2. INSULIN GLARGINE [Concomitant]
     Indication: PRODUCT USED FOR UNKNOWN INDICATION
  3. LOPERAMIDE [Concomitant]
     Indication: PRODUCT USED FOR UNKNOWN INDICATION
  4. METFORMIN [Concomitant]
     Indication: PRODUCT USED FOR UNKNOWN INDICATION
  5. CITALOPRAM HYDROBROMIDE [Suspect]
     Indication: DEPRESSION
     Route: 048
     Dates: start: 20100924, end: 20110117
  6. ZOPICLONE [Concomitant]
     Indication: INSOMNIA
     Dates: start: 20070101
  7. ZOPICLONE [Concomitant]

REACTIONS (1)
  - SOMNAMBULISM [None]
